FAERS Safety Report 4662779-3 (Version None)
Quarter: 2005Q2

REPORT INFORMATION
  Report Type: 
  Country: None (occurrence: None)
  Receive Date: 20050516
  Receipt Date: 20050503
  Transmission Date: 20051028
  Serious: Yes (Death, Life-Threatening, Hospitalization, Other)
  Sender: FDA-Public Use
  Company Number: GB-JNJFOC-20050305047

PATIENT
  Sex: Female
  Weight: 73 kg

DRUGS (9)
  1. REMICADE [Suspect]
     Indication: RHEUMATOID ARTHRITIS
     Dosage: REMICADE WAS WITHDRAWN PRIOR TO ONSET OF EVENT.
     Route: 042
  2. AZATHOPRINE [Concomitant]
  3. RISEDRONATE SODIUM [Concomitant]
  4. CELEBREX [Concomitant]
  5. FRUSEMIDE [Concomitant]
  6. CO-PROXAMOL [Concomitant]
  7. CO-PROXAMOL [Concomitant]
  8. MST [Concomitant]
  9. PREDNISOLONE [Concomitant]

REACTIONS (3)
  - BRONCHOPNEUMONIA [None]
  - RESPIRATORY FAILURE [None]
  - STREPTOCOCCAL INFECTION [None]
